FAERS Safety Report 8140362-5 (Version None)
Quarter: 2012Q1

REPORT INFORMATION
  Report Type: 
  Country: None (occurrence: None)
  Receive Date: 20120216
  Receipt Date: 20120210
  Transmission Date: 20120608
  Serious: No
  Sender: FDA-Public Use
  Company Number: US-PFIZER INC-2012037208

PATIENT
  Sex: Male
  Weight: 99.8 kg

DRUGS (3)
  1. LORCET-HD [Concomitant]
     Indication: PAIN
     Dosage: UNK
  2. LYRICA [Suspect]
     Indication: NEURALGIA
     Dosage: 100 MG, 3X/DAY
     Route: 048
  3. BACLOFEN [Concomitant]
     Dosage: UNK

REACTIONS (3)
  - DRUG WITHDRAWAL SYNDROME [None]
  - PAIN [None]
  - FACIAL PAIN [None]
